FAERS Safety Report 7960133 (Version 3)
Quarter: 2013Q2

REPORT INFORMATION
  Report Type: Spontaneous
  Country: US (occurrence: US)
  Receive Date: 20110525
  Receipt Date: 20130424
  Transmission Date: 20140414
  Serious: Yes (Hospitalization, Other)
  Sender: FDA-Public Use
  Company Number: US-PFIZER INC-2011108897

PATIENT
  Age: 40 Year
  Sex: Female

DRUGS (10)
  1. DILANTIN KAPSEAL [Suspect]
     Indication: CONVULSION
     Dosage: 200 MG, 2X/DAY
     Route: 048
     Dates: start: 20000907, end: 20000920
  2. DILANTIN [Suspect]
     Indication: CONVULSION
     Dosage: 800 MG, SINGLE BOLUS
     Route: 042
     Dates: start: 20000901, end: 20000901
  3. DEPAKOTE [Concomitant]
     Indication: CONVULSION
     Dosage: 500 MG, 3X/DAY
  4. MAVIK [Concomitant]
     Dosage: 2 MG, 1X/DAY
     Route: 048
  5. PROCARDIA XL [Concomitant]
     Dosage: 60 MG AT BED TIME
  6. INSULIN [Concomitant]
     Dosage: UNK
  7. LASIX [Concomitant]
     Dosage: 20 MG, 1X/DAY
  8. PROPRANOLOL [Concomitant]
     Dosage: 20 MG, 2X/DAY
  9. ENALAPRIL [Concomitant]
     Dosage: 10 MG, 2X/DAY
  10. KLOR-CON [Concomitant]
     Dosage: 10 UG, UNK

REACTIONS (1)
  - Stevens-Johnson syndrome [Recovering/Resolving]
